FAERS Safety Report 16264333 (Version 1)
Quarter: 2019Q2

REPORT INFORMATION
  Report Type: Spontaneous
  Country: US (occurrence: US)
  Receive Date: 20190502
  Receipt Date: 20190502
  Transmission Date: 20190711
  Serious: No
  Sender: FDA-Public Use
  Company Number: US-TEVA-2019-US-1044422

PATIENT
  Age: 46 Year
  Sex: Male

DRUGS (1)
  1. TRIHEXYPHENIDYL [Suspect]
     Active Substance: TRIHEXYPHENIDYL
     Route: 065

REACTIONS (2)
  - White blood cell count decreased [Unknown]
  - Tardive dyskinesia [Unknown]
